FAERS Safety Report 6146514-8 (Version None)
Quarter: 2009Q2

REPORT INFORMATION
  Report Type: 
  Country: None (occurrence: None)
  Receive Date: 20090403
  Receipt Date: 20090403
  Transmission Date: 20091009
  Serious: Yes (Life-Threatening, Other)
  Sender: FDA-Public Use
  Company Number: None

PATIENT
  Sex: Female
  Weight: 58.9676 kg

DRUGS (1)
  1. AMBIEN CR [Suspect]
     Indication: INSOMNIA
     Dosage: 1 AT NIGHT

REACTIONS (6)
  - CONFUSIONAL STATE [None]
  - FACIAL BONES FRACTURE [None]
  - FALL [None]
  - INSOMNIA [None]
  - SLEEP DISORDER [None]
  - SOMNAMBULISM [None]
